FAERS Safety Report 8584974-3 (Version None)
Quarter: 2012Q3

REPORT INFORMATION
  Report Type: 
  Country: None (occurrence: None)
  Receive Date: 20120810
  Receipt Date: 20120802
  Transmission Date: 20120928
  Serious: Yes (Other)
  Sender: FDA-Public Use
  Company Number: FI-JNJFOC-20120801591

PATIENT
  Sex: Female

DRUGS (7)
  1. PALIPERIDONE [Suspect]
     Indication: SCHIZOPHRENIA
     Route: 030
  2. IPSATOL [Concomitant]
     Route: 065
  3. ATARAX [Concomitant]
     Route: 065
  4. DIAZEPAM [Concomitant]
     Route: 065
  5. IBUPROFEN [Concomitant]
     Route: 065
  6. LEVOTHYROXINE SODIUM [Concomitant]
     Route: 065
  7. TEMAZEPAM [Concomitant]
     Route: 065

REACTIONS (10)
  - BREAST DISCHARGE [None]
  - PHOTOPHOBIA [None]
  - CHEST PAIN [None]
  - RENAL PAIN [None]
  - OEDEMA PERIPHERAL [None]
  - AMENORRHOEA [None]
  - TOOTHACHE [None]
  - MEMORY IMPAIRMENT [None]
  - HYPOAESTHESIA [None]
  - HEADACHE [None]
